FAERS Safety Report 4464276-7 (Version None)
Quarter: 2004Q4

REPORT INFORMATION
  Report Type: 
  Country: None (occurrence: None)
  Receive Date: 20041001
  Receipt Date: 20040922
  Transmission Date: 20050328
  Serious: Yes (Other)
  Sender: FDA-Public Use
  Company Number: PHFR2004GB03619

PATIENT
  Age: 40 Year
  Sex: Male

DRUGS (3)
  1. CLOZARIL [Suspect]
     Indication: SCHIZOPHRENIA
     Dosage: 450MG/DAY
     Route: 048
     Dates: start: 19981120
  2. CLOZARIL [Suspect]
     Dosage: 450MG/DAY
     Route: 048
  3. AMISULPRIDE [Concomitant]
     Dosage: 600MG/DAY
     Route: 065

REACTIONS (3)
  - ELECTROCARDIOGRAM QT PROLONGED [None]
  - ELECTROCARDIOGRAM T WAVE ABNORMAL [None]
  - SALIVARY HYPERSECRETION [None]
